FAERS Safety Report 6182297-3 (Version None)
Quarter: 2009Q2

REPORT INFORMATION
  Report Type: 
  Country: None (occurrence: None)
  Receive Date: 20090505
  Receipt Date: 20090505
  Transmission Date: 20091009
  Serious: No
  Sender: FDA-Public Use
  Company Number: None

PATIENT
  Age: 26 Year
  Sex: Female
  Weight: 90.7194 kg

DRUGS (1)
  1. YAZ [Suspect]
     Indication: CONTRACEPTION
     Dosage: 3MG DAILY PO
     Route: 048
     Dates: start: 20090410, end: 20090504

REACTIONS (7)
  - ACNE [None]
  - DYSPHAGIA [None]
  - DYSPNOEA [None]
  - HEART RATE IRREGULAR [None]
  - PALPITATIONS [None]
  - PANIC ATTACK [None]
  - THROAT TIGHTNESS [None]
